FAERS Safety Report 7441119-0 (Version None)
Quarter: 2011Q2

REPORT INFORMATION
  Report Type: 
  Country: None (occurrence: None)
  Receive Date: 20110427
  Receipt Date: 20110414
  Transmission Date: 20111010
  Serious: Yes (Hospitalization)
  Sender: FDA-Public Use
  Company Number: RS-MYLANLABS-2011S1008073

PATIENT
  Age: 43 Year
  Sex: Male

DRUGS (1)
  1. HALOPERIDOL [Suspect]
     Route: 065

REACTIONS (1)
  - CHOLESTASIS [None]
